FAERS Safety Report 7190692-9 (Version None)
Quarter: 2010Q4

REPORT INFORMATION
  Report Type: 
  Country: None (occurrence: None)
  Receive Date: 20101223
  Receipt Date: 20101214
  Transmission Date: 20110411
  Serious: Yes (Other)
  Sender: FDA-Public Use
  Company Number: US-JNJFOC-20100604204

PATIENT
  Sex: Female

DRUGS (5)
  1. LEVAQUIN [Suspect]
     Indication: RESPIRATORY DISORDER
     Route: 048
  2. PREDNISONE [Suspect]
     Indication: COUGH
     Route: 065
  3. STEROID INJECTION NOS [Suspect]
     Indication: PRODUCTIVE COUGH
     Route: 008
  4. STEROID INJECTION NOS [Suspect]
     Indication: ASTHMA
     Route: 008
  5. STEROID INJECTION NOS [Suspect]
     Indication: INTERVERTEBRAL DISC DISORDER
     Route: 008

REACTIONS (7)
  - CARPAL TUNNEL SYNDROME [None]
  - JOINT INJURY [None]
  - MUSCULOSKELETAL PAIN [None]
  - PAIN IN EXTREMITY [None]
  - ROTATOR CUFF SYNDROME [None]
  - TENDON DISORDER [None]
  - TENDONITIS [None]
